FAERS Safety Report 7660509-4 (Version None)
Quarter: 2011Q3

REPORT INFORMATION
  Report Type: 
  Country: None (occurrence: None)
  Receive Date: 20110805
  Receipt Date: 20110801
  Transmission Date: 20111222
  Serious: Yes (Other)
  Sender: FDA-Public Use
  Company Number: US-MERCK-1108USA00220

PATIENT
  Sex: Male

DRUGS (2)
  1. FLOMAX [Concomitant]
     Route: 065
  2. PROSCAR [Suspect]
     Indication: BENIGN PROSTATIC HYPERPLASIA
     Route: 048
     Dates: start: 20110301

REACTIONS (1)
  - SCINTILLATING SCOTOMA [None]
